FAERS Safety Report 7572221-0 (Version None)
Quarter: 2011Q2

REPORT INFORMATION
  Report Type: 
  Country: None (occurrence: None)
  Receive Date: 20110624
  Receipt Date: 20110613
  Transmission Date: 20111010
  Serious: Yes (Other)
  Sender: FDA-Public Use
  Company Number: PHHY2011CA24179

PATIENT
  Sex: Male
  Weight: 97.959 kg

DRUGS (3)
  1. SANDOSTATIN LAR [Suspect]
     Indication: CARCINOID TUMOUR
     Dosage: 30 MG, QMO
     Route: 030
  2. SANDOSTATIN LAR [Suspect]
     Dosage: 30 MG, EVERY 4 WEEKS
     Route: 030
  3. SANDOSTATIN LAR [Suspect]
     Indication: CARCINOID SYNDROME
     Dosage: 30 MG, EVERY 4 WEEKS
     Route: 030
     Dates: start: 20110318

REACTIONS (15)
  - LOSS OF CONSCIOUSNESS [None]
  - PANCREATIC CARCINOMA [None]
  - MALAISE [None]
  - ALOPECIA [None]
  - SYNCOPE [None]
  - INFLUENZA LIKE ILLNESS [None]
  - INJECTION SITE PAIN [None]
  - INJECTION SITE REACTION [None]
  - SECRETION DISCHARGE [None]
  - PYELONEPHRITIS [None]
  - WEIGHT INCREASED [None]
  - HAEMATURIA [None]
  - DYSURIA [None]
  - HYPOGLYCAEMIA [None]
  - CHILLS [None]
